FAERS Safety Report 8500979-2 (Version None)
Quarter: 2012Q2

REPORT INFORMATION
  Report Type: 
  Country: None (occurrence: None)
  Receive Date: 20120405
  Receipt Date: 20100309
  Transmission Date: 20120825
  Serious: Yes (Other)
  Sender: FDA-Public Use
  Company Number: PHEH2010US01884

PATIENT
  Age: 77 Year
  Sex: Female

DRUGS (5)
  1. RECLAST [Suspect]
     Dosage: INFUSION
     Dates: start: 20090601
  2. ARICEPT [Concomitant]
  3. NEURONTIN (CITICOLINE SODIUM) [Concomitant]
  4. DITROPAN [Concomitant]
  5. NAMENDA (MEMANTINE HYDORCHLORIDE) [Concomitant]

REACTIONS (9)
  - INFLUENZA LIKE ILLNESS [None]
  - VISION BLURRED [None]
  - RASH GENERALISED [None]
  - NAUSEA [None]
  - ARTHRALGIA [None]
  - OSTEOARTHRITIS [None]
  - PAIN IN EXTREMITY [None]
  - MYALGIA [None]
  - FIBROMYALGIA [None]
